FAERS Safety Report 5214488-X (Version None)
Quarter: 2006Q4

REPORT INFORMATION
  Report Type: 
  Country: None (occurrence: None)
  Receive Date: 20061107
  Receipt Date: 20060808
  Transmission Date: 20070319
  Serious: No
  Sender: FDA-Public Use
  Company Number: 200615008BWH

PATIENT
  Sex: Male

DRUGS (1)
  1. LEVITRA [Suspect]
     Dosage: SEE IMAGE, ORAL
     Route: 048

REACTIONS (3)
  - DRUG INEFFECTIVE [None]
  - FLUSHING [None]
  - NASAL CONGESTION [None]
